FAERS Safety Report 4919755-2 (Version None)
Quarter: 2006Q1

REPORT INFORMATION
  Report Type: 
  Country: None (occurrence: None)
  Receive Date: 20060223
  Receipt Date: 20031107
  Transmission Date: 20060701
  Serious: Yes (Hospitalization)
  Sender: FDA-Public Use
  Company Number: FR-RB-232-2003

PATIENT
  Age: 25 Year
  Sex: Male

DRUGS (1)
  1. BUPRENORPHINE HCL [Suspect]
     Indication: DRUG DEPENDENCE
     Dosage: 8-10 MG
     Route: 042

REACTIONS (4)
  - INTENTIONAL DRUG MISUSE [None]
  - MYCOBACTERIAL INFECTION [None]
  - NEPHROTIC SYNDROME [None]
  - RENAL FAILURE [None]
